FAERS Safety Report 10757945 (Version 1)
Quarter: 2015Q1

REPORT INFORMATION
  Report Type: Spontaneous
  Country: US (occurrence: None)
  Receive Date: 20150202
  Receipt Date: 20150202
  Transmission Date: 20150721
  Serious: Yes (Disabling)
  Sender: FDA-Public Use
  Company Number: None

PATIENT
  Age: 63 Year
  Sex: Male

DRUGS (1)
  1. KOMBOGLYZE [Suspect]
     Active Substance: METFORMIN HYDROCHLORIDE\SAXAGLIPTIN
     Indication: GLUCOSE TOLERANCE IMPAIRED
     Dosage: 2 PILLS ONCE DAILY?LAST COUPLE MONTHS
     Route: 048

REACTIONS (16)
  - Rash [None]
  - Vision blurred [None]
  - Dysuria [None]
  - Abdominal pain [None]
  - Pain [None]
  - Decreased appetite [None]
  - Nervousness [None]
  - Fatigue [None]
  - Dyspepsia [None]
  - Bladder pain [None]
  - Depression [None]
  - Urticaria [None]
  - Genital swelling [None]
  - Anxiety [None]
  - Flank pain [None]
  - Nightmare [None]
